FAERS Safety Report 25076994 (Version 1)
Quarter: 2025Q1

REPORT INFORMATION
  Report Type: Report from Study
  Country: KR (occurrence: KR)
  Receive Date: 20250314
  Receipt Date: 20250314
  Transmission Date: 20250408
  Serious: Yes (Other)
  Sender: ABBVIE
  Company Number: KR-ABBVIE-6168666

PATIENT
  Age: 28 Year
  Sex: Male

DRUGS (3)
  1. RINVOQ [Suspect]
     Active Substance: UPADACITINIB
     Indication: Dermatitis atopic
     Route: 048
     Dates: start: 20231228
  2. PROTOPIC OINTMENT 0.1% 30g [Concomitant]
     Indication: Dermatitis atopic
     Route: 061
     Dates: start: 20240708
  3. DESOWEN LOTION 0.05% [Concomitant]
     Indication: Dermatitis atopic
     Route: 061
     Dates: start: 20240708

REACTIONS (1)
  - Deafness neurosensory [Recovered/Resolved]

NARRATIVE: CASE EVENT DATE: 20240610
